FAERS Safety Report 16785998 (Version 2)
Quarter: 2020Q2

REPORT INFORMATION
  Report Type: Spontaneous
  Country: SE (occurrence: SE)
  Receive Date: 20190909
  Receipt Date: 20200413
  Transmission Date: 20200713
  Serious: Yes (Hospitalization)
  Sender: FDA-Public Use
  Company Number: SE-PFIZER INC-2019388267

PATIENT
  Age: 71 Year
  Sex: Female

DRUGS (1)
  1. ZYVOXID [Suspect]
     Active Substance: LINEZOLID
     Indication: OSTEOMYELITIS ACUTE
     Dosage: 1200 MG, 1X/DAY
     Dates: start: 20190519, end: 201907

REACTIONS (4)
  - Anaemia [Unknown]
  - Nausea [Unknown]
  - Vomiting [Unknown]
  - Rash [Recovered/Resolved]

NARRATIVE: CASE EVENT DATE: 2019
